FAERS Safety Report 14333565 (Version 1)
Quarter: 2017Q4

REPORT INFORMATION
  Report Type: Spontaneous
  Country: US (occurrence: US)
  Receive Date: 20171227
  Receipt Date: 20171227
  Transmission Date: 20180321
  Serious: No
  Sender: FDA-Public Use
  Company Number: None

PATIENT
  Age: 60 Year
  Sex: Female

DRUGS (1)
  1. IBRANCE [Suspect]
     Active Substance: PALBOCICLIB
     Indication: PRODUCT USED FOR UNKNOWN INDICATION
     Dosage: 125MG ONCE DAILY ON DAYS 1-21 EVERY 28 DAYS BY MOUTH
     Route: 048
     Dates: start: 20171109

REACTIONS (5)
  - Nausea [None]
  - Decreased appetite [None]
  - Headache [None]
  - Dysgeusia [None]
  - Skin exfoliation [None]

NARRATIVE: CASE EVENT DATE: 20171226
